FAERS Safety Report 9180877 (Version 1)
Quarter: 2013Q1

REPORT INFORMATION
  Report Type: Spontaneous
  Country: US (occurrence: None)
  Receive Date: 20130320
  Receipt Date: 20130320
  Transmission Date: 20140127
  Serious: Yes (Other)
  Sender: FDA-Public Use
  Company Number: CPS-2013-0004

PATIENT
  Age: 35 Year
  Sex: Female
  Weight: 59 kg

DRUGS (1)
  1. LIOTHYRONINE SODIUM [Suspect]
     Indication: THYROID DISORDER
     Dosage: 15 MCG IN MORNING, 10MCG IN AFTERNOON, 10 MCG AT NIGHT
     Dates: start: 20130101, end: 20130110

REACTIONS (8)
  - Chest discomfort [None]
  - Dyspnoea [None]
  - Heart rate decreased [None]
  - Syncope [None]
  - Feeling abnormal [None]
  - Drug ineffective [None]
  - Economic problem [None]
  - Product substitution issue [None]
